FAERS Safety Report 23279978 (Version 1)
Quarter: 2023Q4

REPORT INFORMATION
  Report Type: Spontaneous
  Country: DK (occurrence: DK)
  Receive Date: 20231210
  Receipt Date: 20231210
  Transmission Date: 20240110
  Serious: Yes (Death)
  Sender: FDA-Public Use
  Company Number: None

PATIENT
  Age: 71 Year
  Sex: Male

DRUGS (3)
  1. VABYSMO [Suspect]
     Active Substance: FARICIMAB\FARICIMAB-SVOA
     Indication: Neovascular age-related macular degeneration
     Dosage: DOSAGE: 1ST OUT OF 3 OF AN UNKNOWN DOSAGE EVERY FOUR WEEKS, RIGHT EYE, STRENGTH: 120 MG/ML
     Route: 065
     Dates: start: 20231117
  2. AMLODIPINE [Concomitant]
     Active Substance: AMLODIPINE BESYLATE
     Indication: Hypertension
  3. SIMVASTATIN [Concomitant]
     Active Substance: SIMVASTATIN
     Indication: Hypercholesterolaemia
     Dates: start: 20211209

REACTIONS (2)
  - Death [Fatal]
  - Eye pain [Fatal]

NARRATIVE: CASE EVENT DATE: 20231117
